FAERS Safety Report 6717138-6 (Version None)
Quarter: 2010Q2

REPORT INFORMATION
  Report Type: 
  Country: None (occurrence: None)
  Receive Date: 20100505
  Receipt Date: 20100421
  Transmission Date: 20101027
  Serious: Yes (Hospitalization)
  Sender: FDA-Public Use
  Company Number: DSU-2010-01405

PATIENT
  Age: 58 Year
  Sex: Female
  Weight: 107.5025 kg

DRUGS (19)
  1. WELCHOL [Suspect]
     Indication: HYPERCHOLESTEROLAEMIA
     Dosage: 1250 MG (625 MG, BID), PER ORAL
     Route: 048
     Dates: start: 20091201, end: 20100328
  2. HYDRALAZINE                       (HYDRALAZINE) (HYDRALAZINE) [Suspect]
     Indication: DRUG USE FOR UNKNOWN INDICATION
     Dosage: PER ORAL
     Route: 048
     Dates: start: 20091207, end: 20100120
  3. ACTONEL         (RISEDERONATE SODIUM) (RISEDRONATE SODIUM) [Concomitant]
  4. ALBUTEROL SULFATE HFA   (SALBUTAMOL SULFATE)             (SALBUTAMOL S [Concomitant]
  5. CLONIDINE [Concomitant]
  6. COLCHICINE                (COLCHICINE) (COLCHICINE) [Concomitant]
  7. FISH OIL          (FISH OIL) (FISH OIL) [Concomitant]
  8. FUROSEMIDE [Concomitant]
  9. MECLIZINE          (MECLOZINE HYDROCHLORIDE)            MECLOZINE HYDR [Concomitant]
  10. MOBIC          (MELOXICAM)        (MELCOXICAM) [Concomitant]
  11. OMEPRAZOLE [Concomitant]
  12. PHENERGAN          (PROMETHAZINE)          (PROMETHAZINE) [Concomitant]
  13. PROAIR HFA          (SALBUTAMOL SULFATE)       (SALBUTAMOL SULFATE) [Concomitant]
  14. TRAMADOL HCL [Concomitant]
  15. TRIMPEX          (TRIMETHOPRIM)       (TRIMETHOPRIM) [Concomitant]
  16. VERAPAMIL [Concomitant]
  17. MIRALAX            (MACROGOL)          (MACROGOL) [Concomitant]
  18. ALBUTEROL SULFATE (SALBUTAMOL SULFATE)          (NEBULISER SOLUTION) [Concomitant]
  19. SPIRONOLACTONE         (SPIRONOLACTONE)       (SPIRONOLOATONE) [Concomitant]

REACTIONS (10)
  - ABDOMINAL DISTENSION [None]
  - ANAEMIA [None]
  - BACK PAIN [None]
  - BLOOD COUNT ABNORMAL [None]
  - CONSTIPATION [None]
  - GAIT DISTURBANCE [None]
  - HAEMORRHAGE [None]
  - MUSCLE SPASMS [None]
  - PAIN IN EXTREMITY [None]
  - SWOLLEN TONGUE [None]
